FAERS Safety Report 12146130 (Version 1)
Quarter: 2016Q1

REPORT INFORMATION
  Report Type: Spontaneous
  Country: US (occurrence: US)
  Receive Date: 20160304
  Receipt Date: 20160304
  Transmission Date: 20160526
  Serious: No
  Sender: FDA-Public Use
  Company Number: US-PERRIGO-15US012112

PATIENT
  Age: 57 Year
  Sex: Female
  Weight: 113.38 kg

DRUGS (2)
  1. VITAMIN B12 [Concomitant]
     Active Substance: CYANOCOBALAMIN
     Indication: SUPPLEMENTATION THERAPY
     Dosage: UNK
     Route: 048
     Dates: start: 2003
  2. NAPROXEN 220 MG 140 [Suspect]
     Active Substance: NAPROXEN
     Indication: MYALGIA
     Dosage: 220 MG, EVERY 12 HOURS
     Route: 048
     Dates: start: 20151112, end: 20151113

REACTIONS (4)
  - Hypersensitivity [Recovered/Resolved]
  - Aphonia [Recovering/Resolving]
  - Pruritus [Recovered/Resolved]
  - Urticaria [Recovered/Resolved]

NARRATIVE: CASE EVENT DATE: 20151112
